FAERS Safety Report 15734860 (Version 1)
Quarter: 2018Q4

REPORT INFORMATION
  Report Type: Spontaneous
  Country: DE (occurrence: DE)
  Receive Date: 20181218
  Receipt Date: 20181218
  Transmission Date: 20190205
  Serious: Yes (Other)
  Sender: FDA-Public Use
  Company Number: DE-ANIPHARMA-2018-DE-000203

PATIENT
  Age: 62 Year
  Sex: Male

DRUGS (3)
  1. LERCANIDIPINA [Suspect]
     Active Substance: LERCANIDIPINE
     Dosage: UNK
     Route: 065
     Dates: end: 201811
  2. CANDESARTAN. [Suspect]
     Active Substance: CANDESARTAN
     Indication: HYPERTENSION
     Dosage: UNK
     Route: 048
     Dates: end: 201811
  3. ALLOPURINOL) [Suspect]
     Active Substance: ALLOPURINOL
     Dosage: UNK
     Route: 065
     Dates: start: 2008, end: 201811

REACTIONS (1)
  - Aplastic anaemia [Unknown]
